FAERS Safety Report 16461947 (Version 1)
Quarter: 2019Q2

REPORT INFORMATION
  Report Type: Spontaneous
  Country: US (occurrence: US)
  Receive Date: 20190621
  Receipt Date: 20190621
  Transmission Date: 20190711
  Serious: Yes (Other)
  Sender: FDA-Public Use
  Company Number: US-MELINTA THERAPEUTICS, INC-US-MLNT-19-00075

PATIENT
  Age: 61 Year
  Sex: Male

DRUGS (2)
  1. VABOMERE [Suspect]
     Active Substance: MEROPENEM\VABORBACTAM
     Indication: MEDICAL DEVICE SITE JOINT INFECTION
     Dosage: NOT PROVIDED
     Dates: start: 20190312, end: 20190312
  2. VABOMERE [Suspect]
     Active Substance: MEROPENEM\VABORBACTAM
     Indication: SERRATIA INFECTION

REACTIONS (6)
  - Off label use [Unknown]
  - Hypersensitivity [Unknown]
  - White blood cell count increased [Unknown]
  - Pyrexia [Unknown]
  - Hypotension [Unknown]
  - Erythema [Unknown]

NARRATIVE: CASE EVENT DATE: 20190312
